FAERS Safety Report 10032307 (Version 1)
Quarter: 2014Q1

REPORT INFORMATION
  Report Type: Spontaneous
  Country: US (occurrence: US)
  Receive Date: 20140324
  Receipt Date: 20140324
  Transmission Date: 20141002
  Serious: Yes (Life-Threatening, Congenital Anomaly)
  Sender: FDA-Public Use
  Company Number: US-PFIZER INC-2014076423

PATIENT
  Sex: 0

DRUGS (2)
  1. ZOLOFT [Suspect]
     Dosage: UNK
     Route: 064
  2. SERTRALINE HCL [Suspect]
     Dosage: UNK
     Route: 064

REACTIONS (2)
  - Maternal exposure during pregnancy [Unknown]
  - Congenital anomaly [Unknown]
